FAERS Safety Report 13826117 (Version 2)
Quarter: 2017Q3

REPORT INFORMATION
  Report Type: Spontaneous
  Country: US (occurrence: US)
  Receive Date: 20170802
  Receipt Date: 20170901
  Transmission Date: 20171127
  Serious: Yes (Other)
  Sender: FDA-Public Use
  Company Number: US-SA-2017SA139572

PATIENT
  Age: 47 Year
  Sex: Male

DRUGS (5)
  1. CYMBALTA [Concomitant]
     Active Substance: DULOXETINE HYDROCHLORIDE
     Route: 065
  2. AUBAGIO [Suspect]
     Active Substance: TERIFLUNOMIDE
     Indication: MULTIPLE SCLEROSIS
     Route: 048
  3. VITAMIN D [Concomitant]
     Active Substance: CHOLECALCIFEROL
  4. GABAPENTIN. [Concomitant]
     Active Substance: GABAPENTIN
  5. MODAFINIL. [Concomitant]
     Active Substance: MODAFINIL

REACTIONS (7)
  - Optic neuritis [Not Recovered/Not Resolved]
  - Diarrhoea [Unknown]
  - Disturbance in attention [Unknown]
  - Cognitive disorder [Unknown]
  - Depression [Unknown]
  - Confusional state [Unknown]
  - Abdominal pain upper [Recovered/Resolved]
